FAERS Safety Report 24769572 (Version 2)
Quarter: 2025Q1

REPORT INFORMATION
  Report Type: Spontaneous
  Country: US (occurrence: US)
  Receive Date: 20241224
  Receipt Date: 20250108
  Transmission Date: 20250408
  Serious: Yes (Hospitalization, Other)
  Sender: AMGEN
  Company Number: US-AMGEN-USASP2024247659

PATIENT
  Age: 58 Year
  Sex: Male

DRUGS (1)
  1. REPATHA [Suspect]
     Active Substance: EVOLOCUMAB
     Indication: Product used for unknown indication
     Dosage: 140 MILLIGRAM, Q2WK
     Route: 065
     Dates: start: 2024

REACTIONS (7)
  - Arteriosclerosis coronary artery [Unknown]
  - Procedural complication [Unknown]
  - Cerebral arteriosclerosis [Unknown]
  - Visual impairment [Unknown]
  - Drug dose omission by device [Unknown]
  - Injection site pain [Unknown]
  - Device use error [Unknown]

NARRATIVE: CASE EVENT DATE: 20241101
